FAERS Safety Report 10250005 (Version 1)
Quarter: 2014Q2

REPORT INFORMATION
  Report Type: Spontaneous
  Country: US (occurrence: US)
  Receive Date: 20140620
  Receipt Date: 20140620
  Transmission Date: 20141212
  Serious: No
  Sender: FDA-Public Use
  Company Number: US-009507513-1406USA000561

PATIENT
  Age: 84 Year
  Sex: Male

DRUGS (1)
  1. AFRIN [Suspect]
     Indication: ALLERGIC SINUSITIS
     Dosage: UNK, QD
     Route: 045
     Dates: start: 20140517

REACTIONS (2)
  - Epistaxis [Not Recovered/Not Resolved]
  - Sneezing [Not Recovered/Not Resolved]
